FAERS Safety Report 10733192 (Version 6)
Quarter: 2015Q2

REPORT INFORMATION
  Report Type: Report from Study
  Country: CZ (occurrence: CZ)
  Receive Date: 20150123
  Receipt Date: 20150515
  Transmission Date: 20150821
  Serious: Yes (Hospitalization)
  Sender: FDA-Public Use
  Company Number: CZ-PFIZER INC-2015013003

PATIENT
  Age: 77 Year
  Sex: Male
  Weight: 80 kg

DRUGS (14)
  1. MAGNESIUM [Concomitant]
     Active Substance: MAGNESIUM
     Indication: PROPHYLAXIS
     Dosage: UNK
     Route: 048
  2. FENISTIL [Concomitant]
     Active Substance: DIMETHINDENE
     Indication: DERMATITIS ALLERGIC
     Dosage: UNK
     Route: 061
     Dates: start: 20141216
  3. ACC LONG [Concomitant]
     Indication: COUGH
     Dosage: UNK
     Route: 048
     Dates: start: 20141216
  4. KINITO [Concomitant]
     Indication: WEIGHT DECREASED
     Dosage: UNK
     Route: 048
     Dates: start: 20141216
  5. TEMSIROLIMUS [Suspect]
     Active Substance: TEMSIROLIMUS
     Indication: MANTLE CELL LYMPHOMA
     Dosage: 75 MG, WEEKLY (ARM B)
     Route: 042
     Dates: start: 20141111, end: 20141223
  6. DESIPRAMINE [Suspect]
     Active Substance: DESIPRAMINE
     Indication: MANTLE CELL LYMPHOMA
     Dosage: 50 MG, WEEKLY FOR 2 WEEKS
     Route: 048
     Dates: start: 20141030, end: 20141111
  7. TAMIPRO [Concomitant]
     Indication: BENIGN PROSTATIC HYPERPLASIA
     Dosage: UNK
     Route: 048
  8. LOKREN [Concomitant]
     Active Substance: BETAXOLOL HYDROCHLORIDE
     Indication: HYPERTENSION
     Dosage: UNK
     Route: 048
  9. AERIUS [Concomitant]
     Active Substance: DESLORATADINE
     Indication: SEASONAL ALLERGY
     Dosage: UNK
     Route: 048
  10. MAGNESIUM SULFATE 20% [Concomitant]
     Indication: HYPOPHOSPHATAEMIA
     Dosage: UNK
     Route: 042
     Dates: start: 20150106, end: 20150108
  11. POTASSIUM DIHYDROGEN PHOSPHATE [Concomitant]
     Indication: HYPOPHOSPHATAEMIA
     Dosage: UNK
     Route: 042
     Dates: start: 20150106
  12. TANTUM VERDE [Concomitant]
     Active Substance: BENZYDAMINE HYDROCHLORIDE
     Indication: STOMATITIS
     Dosage: UNK
     Route: 048
     Dates: start: 20141209
  13. BERODUAL N [Concomitant]
     Active Substance: FENOTEROL HYDROBROMIDE\IPRATROPIUM BROMIDE
     Indication: COUGH
     Dosage: UNK
     Route: 055
     Dates: start: 20141223
  14. MIRTAZAPIN [Concomitant]
     Active Substance: MIRTAZAPINE
     Indication: WEIGHT DECREASED
     Dosage: UNK
     Route: 048
     Dates: start: 20141216

REACTIONS (1)
  - Bronchopneumonia [Recovered/Resolved with Sequelae]

NARRATIVE: CASE EVENT DATE: 20150111
